FAERS Safety Report 5953502-0 (Version None)
Quarter: 2008Q4

REPORT INFORMATION
  Report Type: 
  Country: None (occurrence: None)
  Receive Date: 20081031
  Receipt Date: 20080607
  Transmission Date: 20090506
  Serious: No
  Sender: FDA-Public Use
  Company Number: 2008PV035680

PATIENT
  Age: 70 Year
  Sex: Female

DRUGS (4)
  1. SYMLIN [Suspect]
     Indication: DIABETES MELLITUS
     Dosage: 60 MCG; TID; SC
     Route: 058
     Dates: start: 20080401
  2. SYMLIN [Suspect]
     Indication: DIABETES MELLITUS
     Dosage: TID; SC
     Route: 058
     Dates: start: 20070501, end: 20080101
  3. NOVOLOG [Concomitant]
  4. INSULIN DETEMIR [Concomitant]

REACTIONS (2)
  - BLOOD GLUCOSE DECREASED [None]
  - BLOOD GLUCOSE INCREASED [None]
